FAERS Safety Report 10558589 (Version 4)
Quarter: 2015Q1

REPORT INFORMATION
  Report Type: Spontaneous
  Country: CL (occurrence: CL)
  Receive Date: 20141031
  Receipt Date: 20150106
  Transmission Date: 20150720
  Serious: Yes (Disabling)
  Sender: FDA-Public Use
  Company Number: CL-MERCK-1404CHL005352

PATIENT
  Age: 50 Year
  Sex: Female

DRUGS (4)
  1. VICTRELIS [Suspect]
     Active Substance: BOCEPREVIR
     Indication: HEPATITIS C
     Dosage: TOTAL DAILY DOSE: 2400 MG, FREQUENCY: DAILY
     Route: 048
     Dates: start: 20140425
  2. LORAZEPAM. [Concomitant]
     Active Substance: LORAZEPAM
     Indication: SLEEP DISORDER THERAPY
     Dosage: 2 MG, AT NIGHTS DAILY
  3. REBETOL [Suspect]
     Active Substance: RIBAVIRIN
     Indication: HEPATITIS C
     Dosage: TOTAL DAILY DOSE: 1000 MG(3 TABLETS IN THE MORNING AND 2 TABLETS IN THE EVENING)
     Route: 048
     Dates: start: 20140328
  4. PEGINTRON [Suspect]
     Active Substance: PEGINTERFERON ALFA-2B
     Indication: HEPATITIS C
     Dosage: STRENGTH 100MCG/0.5ML, PREFILLED PEN/REDIPEN, WEEKLY
     Route: 058
     Dates: start: 20140328

REACTIONS (48)
  - Epistaxis [Recovered/Resolved]
  - Vomiting [Not Recovered/Not Resolved]
  - Headache [Not Recovered/Not Resolved]
  - Myalgia [Unknown]
  - Muscular weakness [Unknown]
  - Pruritus [Not Recovered/Not Resolved]
  - Dry mouth [Unknown]
  - Abdominal pain upper [Unknown]
  - Tongue dry [Not Recovered/Not Resolved]
  - Pruritus [Unknown]
  - Weight decreased [Not Recovered/Not Resolved]
  - Feeling hot [Not Recovered/Not Resolved]
  - Abdominal pain [Not Recovered/Not Resolved]
  - Depressed mood [Recovered/Resolved]
  - Dry skin [Not Recovered/Not Resolved]
  - Vomiting [Recovering/Resolving]
  - Decreased appetite [Not Recovered/Not Resolved]
  - Anaemia [Not Recovered/Not Resolved]
  - Muscle spasms [Not Recovered/Not Resolved]
  - Nausea [Unknown]
  - Crying [Unknown]
  - Feeling abnormal [Unknown]
  - Weight increased [Not Recovered/Not Resolved]
  - Nasopharyngitis [Recovered/Resolved]
  - Swelling face [Not Recovered/Not Resolved]
  - Myalgia [Not Recovered/Not Resolved]
  - Nausea [Recovered/Resolved]
  - Vomiting [Unknown]
  - Yellow skin [Recovered/Resolved]
  - Mucosal dryness [Unknown]
  - Pruritus [Recovered/Resolved]
  - Dizziness [Recovering/Resolving]
  - Fatigue [Not Recovered/Not Resolved]
  - Mood altered [Unknown]
  - Chills [Not Recovered/Not Resolved]
  - Blood glucose increased [Not Recovered/Not Resolved]
  - Abdominal pain [Not Recovered/Not Resolved]
  - Feeding disorder [Unknown]
  - Apathy [Not Recovered/Not Resolved]
  - Pruritus [Recovering/Resolving]
  - General physical health deterioration [Recovering/Resolving]
  - Dysgeusia [Not Recovered/Not Resolved]
  - Dry skin [Unknown]
  - Mood swings [Unknown]
  - Abdominal distension [Not Recovered/Not Resolved]
  - Pruritus [Unknown]
  - Nausea [Recovering/Resolving]
  - Drug administration error [Unknown]

NARRATIVE: CASE EVENT DATE: 2014
